FAERS Safety Report 25212665 (Version 1)
Quarter: 2025Q2

REPORT INFORMATION
  Report Type: Spontaneous
  Country: NL (occurrence: NL)
  Receive Date: 20250418
  Receipt Date: 20250418
  Transmission Date: 20250716
  Serious: Yes (Other)
  Sender: TEVA
  Company Number: None

PATIENT
  Age: 31 Year
  Sex: Male
  Weight: 76 kg

DRUGS (1)
  1. LACOSAMIDE [Suspect]
     Active Substance: LACOSAMIDE
     Indication: Epilepsy
     Dosage: 1 PIECE 2 X PER DAY, LACOSAMIDE TABLET 100MG / BRAND NAME NOT SPECIFIED
     Route: 048
     Dates: start: 20250130

REACTIONS (2)
  - Epilepsy [Not Recovered/Not Resolved]
  - Dizziness [Not Recovered/Not Resolved]
